FAERS Safety Report 5934420-0 (Version None)
Quarter: 2008Q4

REPORT INFORMATION
  Report Type: 
  Country: None (occurrence: None)
  Receive Date: 20081029
  Receipt Date: 20080218
  Transmission Date: 20090506
  Serious: Yes (Hospitalization)
  Sender: FDA-Public Use
  Company Number: US-NOVOPROD-270861

PATIENT
  Age: 59 Year
  Sex: Female
  Weight: 65.76 kg

DRUGS (10)
  1. NOVOLIN N [Suspect]
     Indication: TYPE 1 DIABETES MELLITUS
     Dosage: 10 IU, TID
     Route: 058
     Dates: end: 20070101
  2. NOVOLIN N [Suspect]
     Dosage: UNKNOWN
     Route: 058
     Dates: start: 20070101, end: 20070101
  3. NOVOLIN N [Suspect]
     Dosage: SLIDING SCALE
     Route: 058
     Dates: start: 20070101
  4. NOVOLIN R [Suspect]
     Indication: TYPE 1 DIABETES MELLITUS
     Dosage: 5 IU, TID
     Route: 058
     Dates: end: 20070101
  5. NOVOLIN R [Suspect]
     Dosage: UNK
     Route: 058
     Dates: start: 20070101, end: 20070101
  6. NOVOLIN R [Suspect]
     Dosage: SLIDING SCALE
     Route: 058
     Dates: start: 20070101
  7. ALTACE [Concomitant]
     Indication: BLOOD PRESSURE INCREASED
     Route: 048
  8. FUROSEMIDE [Concomitant]
     Indication: OEDEMA PERIPHERAL
     Route: 048
  9. VITAMIN B-12 [Concomitant]
     Indication: MULTIPLE SCLEROSIS
     Route: 030
  10. VITAMINS NOS [Concomitant]
     Indication: SUPPLEMENTATION THERAPY
     Route: 048

REACTIONS (3)
  - BLOOD GLUCOSE INCREASED [None]
  - BLOOD PHOSPHORUS DECREASED [None]
  - INFLUENZA [None]
